FAERS Safety Report 21199528 (Version 7)
Quarter: 2025Q2

REPORT INFORMATION
  Report Type: Report from Study
  Country: US (occurrence: US)
  Receive Date: 20220811
  Receipt Date: 20250616
  Transmission Date: 20250716
  Serious: Yes (Hospitalization, Other)
  Sender: TAKEDA
  Company Number: US-TAKEDA-2022TUS053683

PATIENT
  Age: 75 Year
  Sex: Male

DRUGS (6)
  1. TEDUGLUTIDE [Suspect]
     Active Substance: TEDUGLUTIDE
     Indication: Short-bowel syndrome
     Dosage: 1.1 MILLIGRAM, QD
     Dates: start: 20210223, end: 20220922
  2. TEDUGLUTIDE [Suspect]
     Active Substance: TEDUGLUTIDE
     Dosage: 1.6 MILLIGRAM, QD
     Dates: start: 20211208
  3. TEDUGLUTIDE [Suspect]
     Active Substance: TEDUGLUTIDE
     Dosage: 1.6 MILLIGRAM, QD
     Dates: start: 20220223
  4. TEDUGLUTIDE [Suspect]
     Active Substance: TEDUGLUTIDE
  5. TEDUGLUTIDE [Suspect]
     Active Substance: TEDUGLUTIDE
     Dosage: 11 MILLIGRAM, QD
     Dates: end: 20230314
  6. TEDUGLUTIDE [Suspect]
     Active Substance: TEDUGLUTIDE
     Dosage: 1.6 MILLIGRAM, QD
     Dates: end: 20231119

REACTIONS (16)
  - Suspected COVID-19 [Unknown]
  - Weight decreased [Unknown]
  - Malnutrition [Unknown]
  - Faecaloma [Recovered/Resolved]
  - Fall [Recovered/Resolved]
  - Femoral neck fracture [Recovered/Resolved]
  - Nephrolithiasis [Recovering/Resolving]
  - Blood potassium decreased [Unknown]
  - Renal impairment [Unknown]
  - Gastrointestinal inflammation [Unknown]
  - Seizure [Unknown]
  - Renal failure [Unknown]
  - Illness [Unknown]
  - Cerebrovascular accident [Unknown]
  - Cerebral haemorrhage [Unknown]
  - Drug ineffective [Unknown]

NARRATIVE: CASE EVENT DATE: 20220801
